FAERS Safety Report 17900714 (Version 1)
Quarter: 2020Q3

REPORT INFORMATION
  Report Type: Spontaneous
  Country: US (occurrence: US)
  Receive Date: 20200615
  Receipt Date: 20200615
  Transmission Date: 20201104
  Serious: Yes (Other)
  Sender: FDA-Public Use
  Company Number: None

PATIENT
  Age: 55 Year
  Sex: Male

DRUGS (1)
  1. BROLUCIZUMAB. [Suspect]
     Active Substance: BROLUCIZUMAB
     Indication: MACULAR OEDEMA
     Route: 047
     Dates: start: 20200504, end: 20200504

REACTIONS (2)
  - Phlebitis [None]
  - Vitritis [None]

NARRATIVE: CASE EVENT DATE: 20200605
